FAERS Safety Report 8358652-X (Version None)
Quarter: 2012Q2

REPORT INFORMATION
  Report Type: 
  Country: None (occurrence: None)
  Receive Date: 20120514
  Receipt Date: 20120508
  Transmission Date: 20120825
  Serious: Yes (Hospitalization)
  Sender: FDA-Public Use
  Company Number: US-MERCK-1205USA01753

PATIENT
  Age: 64 Year
  Sex: Female

DRUGS (6)
  1. ALPRAZOLAM [Concomitant]
     Route: 065
  2. ZOLPIDEM TARTRATE [Concomitant]
     Route: 065
  3. ATENOLOL [Concomitant]
     Route: 065
  4. JANUVIA [Suspect]
     Indication: DIABETES MELLITUS
     Dosage: 100MG TABLET
     Route: 048
  5. PREDNISONE [Concomitant]
     Route: 048
  6. HYDROCODONE [Concomitant]
     Route: 065

REACTIONS (8)
  - POOR QUALITY SLEEP [None]
  - DIARRHOEA [None]
  - HEADACHE [None]
  - WRONG TECHNIQUE IN DRUG USAGE PROCESS [None]
  - WEIGHT DECREASED [None]
  - BLOOD GLUCOSE INCREASED [None]
  - BLOOD CALCIUM ABNORMAL [None]
  - MUSCULOSKELETAL CHEST PAIN [None]
